FAERS Safety Report 5878244-1 (Version None)
Quarter: 2008Q3

REPORT INFORMATION
  Report Type: 
  Country: None (occurrence: None)
  Receive Date: 20080911
  Receipt Date: 20080908
  Transmission Date: 20090109
  Serious: Yes (Other)
  Sender: FDA-Public Use
  Company Number: FR-WYE-H05923208

PATIENT
  Sex: Female

DRUGS (1)
  1. OROKEN [Suspect]
     Route: 048
     Dates: start: 20080301, end: 20080301

REACTIONS (2)
  - DEMYELINATION [None]
  - NEUROLOGICAL SYMPTOM [None]
